FAERS Safety Report 6297781-1 (Version None)
Quarter: 2009Q3

REPORT INFORMATION
  Report Type: 
  Country: None (occurrence: None)
  Receive Date: 20090804
  Receipt Date: 20090804
  Transmission Date: 20100115
  Serious: Yes (Other)
  Sender: FDA-Public Use
  Company Number: None

PATIENT
  Age: 64 Year
  Sex: Female
  Weight: 50.8029 kg

DRUGS (1)
  1. ZICAM NASAL SPRAY GEL 15 ML MATRIXX [Suspect]
     Indication: NASOPHARYNGITIS
     Dosage: 1 SPRAY PER NOSTRIL, NASAL
     Route: 045
     Dates: start: 20090227, end: 20090305

REACTIONS (4)
  - AGEUSIA [None]
  - ANOSMIA [None]
  - CONDITION AGGRAVATED [None]
  - PRODUCT QUALITY ISSUE [None]
